FAERS Safety Report 5746512-X (Version None)
Quarter: 2008Q2

REPORT INFORMATION
  Report Type: 
  Country: None (occurrence: None)
  Receive Date: 20080520
  Receipt Date: 20080520
  Transmission Date: 20081010
  Serious: Yes (Other)
  Sender: FDA-Public Use
  Company Number: None

PATIENT
  Sex: Female
  Weight: 77.1115 kg

DRUGS (2)
  1. ESTRADIOL [Suspect]
     Indication: HYSTERECTOMY
     Dosage: .0375 MG 1 / WK
     Dates: start: 20080302, end: 20080420
  2. ESTRADIOL [Suspect]
     Indication: POSTMENOPAUSE
     Dosage: .0375 MG 1 / WK
     Dates: start: 20080302, end: 20080420

REACTIONS (3)
  - COUGH [None]
  - SINUS DISORDER [None]
  - SKIN IRRITATION [None]
